FAERS Safety Report 20750502 (Version 1)
Quarter: 2022Q2

REPORT INFORMATION
  Report Type: Spontaneous
  Country: US (occurrence: US)
  Receive Date: 20220426
  Receipt Date: 20220426
  Transmission Date: 20220721
  Serious: No
  Sender: FDA-Public Use
  Company Number: US-KARYOPHARM-2022KPT000444

PATIENT

DRUGS (15)
  1. XPOVIO [Suspect]
     Active Substance: SELINEXOR
     Indication: Plasma cell myeloma
     Dosage: 60 MG, WEEKLY
     Route: 048
     Dates: start: 20220407, end: 20220414
  2. ACYCLOVIR [Concomitant]
     Active Substance: ACYCLOVIR
  3. ARANESP [Concomitant]
     Active Substance: DARBEPOETIN ALFA
  4. ATIVAN [Concomitant]
     Active Substance: LORAZEPAM
  5. DEXAMETHASONE SODIUM SUCCINATE [Concomitant]
     Active Substance: DEXAMETHASONE SODIUM SUCCINATE
  6. ERGOCALCIFEROL [Concomitant]
     Active Substance: ERGOCALCIFEROL
  7. FOLIC ACID [Concomitant]
     Active Substance: FOLIC ACID
  8. LOMOTIL [Concomitant]
     Active Substance: ATROPINE SULFATE\DIPHENOXYLATE HYDROCHLORIDE
  9. OLANZAPINE [Concomitant]
     Active Substance: OLANZAPINE
  10. ONDANSETRON [Concomitant]
     Active Substance: ONDANSETRON
  11. PROMETHAZINE [Concomitant]
     Active Substance: PROMETHAZINE HYDROCHLORIDE
  12. SIMVASTATIN [Concomitant]
     Active Substance: SIMVASTATIN
  13. XANAX [Concomitant]
     Active Substance: ALPRAZOLAM
  14. XGEVA [Concomitant]
     Active Substance: DENOSUMAB
  15. POTASSIUM CHLORIDE [Concomitant]
     Active Substance: POTASSIUM CHLORIDE

REACTIONS (3)
  - Nausea [Not Recovered/Not Resolved]
  - Vomiting [Not Recovered/Not Resolved]
  - Diarrhoea [Unknown]

NARRATIVE: CASE EVENT DATE: 20220401
